FAERS Safety Report 11837793 (Version 2)
Quarter: 2016Q1

REPORT INFORMATION
  Report Type: Spontaneous
  Country: JP (occurrence: JP)
  Receive Date: 20151215
  Receipt Date: 20160105
  Transmission Date: 20160525
  Serious: Yes (Hospitalization)
  Sender: FDA-Public Use
  Company Number: JP-PFIZER INC-2015438963

PATIENT
  Age: 75 Year
  Sex: Female
  Weight: 44 kg

DRUGS (4)
  1. SUTENT [Suspect]
     Active Substance: SUNITINIB MALATE
     Dosage: 25 MG, CYCLIC (DAILY ON A REGIMEN OF 2-DAY TREATMENT AND 1-DAY INTERRUPTION)
     Dates: start: 20151125
  2. SUTENT [Suspect]
     Active Substance: SUNITINIB MALATE
     Indication: RENAL CANCER
     Dosage: 50 MG, CYCLIC (ONCE DAILY ON A REGIMEN OF 2-DAY TREATMENT AND 1-DAY INTERRUPTION)
     Route: 048
     Dates: start: 20100312
  3. SUTENT [Suspect]
     Active Substance: SUNITINIB MALATE
     Dosage: 25 MG, CYCLIC (DAILY ON A REGIMEN OF 2-DAY TREATMENT AND 1-DAY INTERRUPTION)
     Route: 048
  4. SUTENT [Suspect]
     Active Substance: SUNITINIB MALATE
     Dosage: 25 MG, DAILY
     Route: 048
     Dates: start: 20151102

REACTIONS (1)
  - Fracture [Recovering/Resolving]

NARRATIVE: CASE EVENT DATE: 2015
